FAERS Safety Report 5393629-8 (Version None)
Quarter: 2007Q3

REPORT INFORMATION
  Report Type: 
  Country: None (occurrence: None)
  Receive Date: 20070723
  Receipt Date: 20061004
  Transmission Date: 20080115
  Serious: No
  Sender: FDA-Public Use
  Company Number: A0622479A

PATIENT
  Age: 67 Year
  Sex: Female

DRUGS (11)
  1. AVANDIA [Suspect]
     Dosage: 8MG PER DAY
     Route: 048
     Dates: start: 20030701
  2. FUROSEMIDE [Concomitant]
  3. NORVASC [Concomitant]
  4. ZETIA [Concomitant]
  5. CRESTOR [Concomitant]
  6. COREG [Concomitant]
  7. LIVERITE [Concomitant]
  8. LYRICA [Concomitant]
  9. ASPIRIN [Concomitant]
  10. MULTI-VITAMIN [Concomitant]
  11. FOLIC ACID [Concomitant]

REACTIONS (3)
  - SLUGGISHNESS [None]
  - SWELLING [None]
  - WEIGHT INCREASED [None]
